FAERS Safety Report 25348100 (Version 1)
Quarter: 2025Q2

REPORT INFORMATION
  Report Type: Spontaneous
  Country: US (occurrence: None)
  Receive Date: 20250522
  Receipt Date: 20250522
  Transmission Date: 20250716
  Serious: Yes (Hospitalization)
  Sender: FDA-CTU
  Company Number: None

PATIENT
  Sex: Male

DRUGS (1)
  1. CAPECITABINE [Suspect]
     Active Substance: CAPECITABINE
     Indication: Colon cancer
     Dosage: 1500 MG TWICE A DAY ORAL?
     Route: 048
     Dates: start: 20250329

REACTIONS (5)
  - Swelling [None]
  - Swelling face [None]
  - Eye swelling [None]
  - Skin discolouration [None]
  - Diarrhoea [None]
